FAERS Safety Report 21735878 (Version 2)
Quarter: 2022Q4

REPORT INFORMATION
  Report Type: Report from Study
  Country: US (occurrence: US)
  Receive Date: 20221215
  Receipt Date: 20221221
  Transmission Date: 20230113
  Serious: Yes (Hospitalization)
  Sender: FDA-Public Use
  Company Number: US-PFIZER INC-PV202200121891

PATIENT
  Age: 72 Year
  Sex: Male

DRUGS (1)
  1. INLYTA [Suspect]
     Active Substance: AXITINIB
     Dosage: UNK
     Dates: end: 20221215

REACTIONS (6)
  - Hypoaesthesia oral [Unknown]
  - Dysphonia [Unknown]
  - Swelling [Unknown]
  - Arthralgia [Unknown]
  - Amnesia [Unknown]
  - Thinking abnormal [Unknown]
